FAERS Safety Report 6215544-X (Version None)
Quarter: 2009Q2

REPORT INFORMATION
  Report Type: 
  Country: None (occurrence: None)
  Receive Date: 20090605
  Receipt Date: 20080111
  Transmission Date: 20091009
  Serious: Yes (Other)
  Sender: FDA-Public Use
  Company Number: US-ASTRAZENECA-2007UW20448

PATIENT
  Age: 13147 Day
  Sex: Female
  Weight: 85.3 kg

DRUGS (21)
  1. SEROQUEL [Suspect]
     Indication: ANXIETY
     Route: 048
     Dates: start: 20030101, end: 20071101
  2. SEROQUEL [Suspect]
     Indication: DEPRESSION
     Route: 048
     Dates: start: 20030101, end: 20071101
  3. SEROQUEL [Suspect]
     Dosage: 25 MG -100 MG, DAILY, TWO TIMES A DAY
     Route: 048
     Dates: start: 20031216
  4. SEROQUEL [Suspect]
     Dosage: 25 MG -100 MG, DAILY, TWO TIMES A DAY
     Route: 048
     Dates: start: 20031216
  5. CELEXA [Concomitant]
  6. LEXAPRO [Concomitant]
     Dates: start: 20030101
  7. DESYREL [Concomitant]
  8. ZOLOFT [Concomitant]
     Dates: start: 20010101, end: 20030101
  9. TRAZODONE HCL [Concomitant]
     Route: 048
     Dates: start: 20020826
  10. CITALOPRAM HYDROBROMIDE [Concomitant]
     Route: 048
     Dates: start: 20031216
  11. KETOPROFEN [Concomitant]
     Route: 048
     Dates: start: 20050201
  12. SKELAXIN [Concomitant]
     Route: 048
     Dates: start: 20060327
  13. METFORMIN HYDROCHLORIDE [Concomitant]
     Route: 048
     Dates: start: 20060818
  14. CRESTOR [Concomitant]
     Route: 048
     Dates: start: 20061210
  15. GLIMEPIRIDE [Concomitant]
     Dosage: 2 MG TO 4 MG
     Route: 048
     Dates: start: 20070107
  16. LISINOPRIL [Concomitant]
     Route: 048
     Dates: start: 20070706
  17. LIPITOR [Concomitant]
     Route: 048
     Dates: start: 20070706
  18. PREVACID [Concomitant]
     Route: 048
     Dates: start: 20070706
  19. ACTOS [Concomitant]
     Route: 048
     Dates: start: 20070726
  20. ASPIRIN [Concomitant]
     Route: 048
     Dates: start: 20070823
  21. PRAVASTATIN [Concomitant]
     Route: 048
     Dates: start: 20071012

REACTIONS (2)
  - NERVE INJURY [None]
  - TYPE 2 DIABETES MELLITUS [None]
